FAERS Safety Report 23503095 (Version 1)
Quarter: 2024Q1

REPORT INFORMATION
  Report Type: Spontaneous
  Country: US (occurrence: US)
  Receive Date: 20240208
  Receipt Date: 20240208
  Transmission Date: 20240410
  Serious: No
  Sender: FDA-Public Use
  Company Number: US-INTRA-CELLULAR THERAPIES, INC.-2023ICT01839

PATIENT
  Age: 58 Year
  Sex: Male
  Weight: 83.9 kg

DRUGS (9)
  1. CAPLYTA [Suspect]
     Active Substance: LUMATEPERONE
     Indication: Bipolar disorder
     Dosage: 10.5 MG, 1X/DAY
     Route: 048
     Dates: start: 20230915, end: 20231010
  2. CAPLYTA [Suspect]
     Active Substance: LUMATEPERONE
     Dosage: 21 MG, 1X/DAY
     Route: 048
     Dates: start: 20231011, end: 20231121
  3. CAPLYTA [Suspect]
     Active Substance: LUMATEPERONE
     Dosage: 31.5 MG, 1X/DAY
     Route: 048
     Dates: start: 20231122, end: 20231217
  4. CAPLYTA [Suspect]
     Active Substance: LUMATEPERONE
     Dosage: 42 MG, 1X/DAY
     Route: 048
     Dates: start: 20231218
  5. LAMICTAL [Concomitant]
     Active Substance: LAMOTRIGINE
     Dosage: UNK
  6. DEPAKOTE ER [Concomitant]
     Active Substance: DIVALPROEX SODIUM
  7. TOPAMAX [Concomitant]
     Active Substance: TOPIRAMATE
  8. TRILEPTAL [Concomitant]
     Active Substance: OXCARBAZEPINE
  9. AMBIEN [Concomitant]
     Active Substance: ZOLPIDEM TARTRATE

REACTIONS (1)
  - Penile dermatitis [Recovered/Resolved]

NARRATIVE: CASE EVENT DATE: 20231213
